FAERS Safety Report 17102144 (Version 2)
Quarter: 2020Q1

REPORT INFORMATION
  Report Type: Report from Study
  Country: US (occurrence: US)
  Receive Date: 20191202
  Receipt Date: 20200206
  Transmission Date: 20200409
  Serious: Yes (Other)
  Sender: FDA-Public Use
  Company Number: US-BIOGEN-2019BI00812852

PATIENT
  Sex: Male

DRUGS (6)
  1. TECFIDERA [Suspect]
     Active Substance: DIMETHYL FUMARATE
     Dosage: MAINTENANCE DOSE
     Route: 048
  2. PREDNISONE. [Concomitant]
     Active Substance: PREDNISONE
     Dosage: DAY 5 AND 6, 0.5 TAB
     Route: 048
  3. PREDNISONE. [Concomitant]
     Active Substance: PREDNISONE
     Indication: PRODUCT USED FOR UNKNOWN INDICATION
     Dosage: DAY 1 AND 2, 1.5 TAB
     Route: 048
  4. TECFIDERA [Suspect]
     Active Substance: DIMETHYL FUMARATE
     Indication: MULTIPLE SCLEROSIS
     Dosage: STARTING DOSE
     Route: 048
  5. ZINBRYTA [Suspect]
     Active Substance: DACLIZUMAB
     Indication: MULTIPLE SCLEROSIS
     Route: 058
  6. PREDNISONE. [Concomitant]
     Active Substance: PREDNISONE
     Dosage: DAY 3 AND 4, 1 TAB
     Route: 048

REACTIONS (20)
  - Pollakiuria [Unknown]
  - Deep vein thrombosis [Unknown]
  - Balance disorder [Unknown]
  - Pain in extremity [Unknown]
  - Gait disturbance [Unknown]
  - Somnolence [Unknown]
  - Joint stiffness [Unknown]
  - Paraparesis [Unknown]
  - Fatigue [Unknown]
  - Back pain [Unknown]
  - Constipation [Unknown]
  - Increased tendency to bruise [Unknown]
  - Erectile dysfunction [Unknown]
  - Bladder cancer [Recovered/Resolved]
  - Asthenia [Unknown]
  - Arthralgia [Unknown]
  - Myelopathy [Unknown]
  - Multiple sclerosis [Unknown]
  - Muscle spasms [Unknown]
  - Coordination abnormal [Unknown]
